FAERS Safety Report 16283007 (Version 2)
Quarter: 2019Q4

REPORT INFORMATION
  Report Type: Spontaneous
  Country: IN (occurrence: IN)
  Receive Date: 20190507
  Receipt Date: 20191120
  Transmission Date: 20200122
  Serious: Yes (Hospitalization, Other)
  Sender: FDA-Public Use
  Company Number: PHHY2019IN103625

PATIENT
  Age: 85 Year
  Sex: Female

DRUGS (3)
  1. RITUXIMAB. [Suspect]
     Active Substance: RITUXIMAB
     Indication: STATUS EPILEPTICUS
     Dosage: UNK UNK, QW
     Route: 065
  2. METHYLPREDNISOLONE. [Suspect]
     Active Substance: METHYLPREDNISOLONE
     Indication: STATUS EPILEPTICUS
     Dosage: UNK
     Route: 065
  3. MIDAZOLAM [Concomitant]
     Active Substance: MIDAZOLAM HYDROCHLORIDE
     Indication: STATUS EPILEPTICUS
     Dosage: UNK
     Route: 041

REACTIONS (4)
  - Product use in unapproved indication [Unknown]
  - Disease recurrence [Recovering/Resolving]
  - Status epilepticus [Recovering/Resolving]
  - Coma [Recovering/Resolving]
